FAERS Safety Report 21568467 (Version 1)
Quarter: 2022Q4

REPORT INFORMATION
  Report Type: Spontaneous
  Country: US (occurrence: US)
  Receive Date: 20221108
  Receipt Date: 20221108
  Transmission Date: 20230113
  Serious: No
  Sender: FDA-Public Use
  Company Number: US-BAUSCH-BL-2022-024612

PATIENT
  Age: 64 Year
  Sex: Male
  Weight: 74.910 kg

DRUGS (3)
  1. EFUDEX [Suspect]
     Active Substance: FLUOROURACIL
     Indication: Hyperkeratosis
     Dosage: USED MANY TIMES IN THE PAST
     Route: 061
  2. EFUDEX [Suspect]
     Active Substance: FLUOROURACIL
     Dosage: STARTED IN SEPTEMBER OR OCTOBER OF 2022.
     Route: 061
     Dates: start: 2022, end: 202210
  3. CYMBALTA [Concomitant]
     Active Substance: DULOXETINE HYDROCHLORIDE
     Indication: Product used for unknown indication

REACTIONS (4)
  - Diplopia [Unknown]
  - Headache [Not Recovered/Not Resolved]
  - Abnormal sensation in eye [Unknown]
  - Product quality issue [Unknown]

NARRATIVE: CASE EVENT DATE: 20220101
